FAERS Safety Report 7462284-5 (Version None)
Quarter: 2011Q2

REPORT INFORMATION
  Report Type: 
  Country: None (occurrence: None)
  Receive Date: 20110506
  Receipt Date: 20110421
  Transmission Date: 20111010
  Serious: Yes (Hospitalization, Other)
  Sender: FDA-Public Use
  Company Number: US-JNJFOC-20110411003

PATIENT
  Sex: Male

DRUGS (3)
  1. INSULIN [Concomitant]
     Indication: DIABETES MELLITUS
     Route: 058
  2. RISPERDAL [Suspect]
     Indication: SCHIZOPHRENIA
     Route: 048
  3. RISPERDAL [Suspect]
     Route: 048

REACTIONS (3)
  - SOCIAL AVOIDANT BEHAVIOUR [None]
  - THERAPY CESSATION [None]
  - DISTURBANCE IN SOCIAL BEHAVIOUR [None]
